FAERS Safety Report 12963974 (Version 1)
Quarter: 2016Q4

REPORT INFORMATION
  Report Type: Spontaneous
  Country: JP (occurrence: JP)
  Receive Date: 20161122
  Receipt Date: 20161122
  Transmission Date: 20170207
  Serious: Yes (Hospitalization)
  Sender: FDA-Public Use
  Company Number: JP-FRESENIUS KABI-FK201609048

PATIENT
  Age: 77 Year
  Sex: Male

DRUGS (1)
  1. PROTAMINE SULFATE (MANUFACTURER UNKNOWN) [Suspect]
     Active Substance: PROTAMINE SULFATE
     Indication: HAEMOSTASIS
     Route: 042

REACTIONS (2)
  - Pulmonary hypertension [Recovered/Resolved]
  - Shock [Recovered/Resolved]
